FAERS Safety Report 5139111-4 (Version None)
Quarter: 2006Q4

REPORT INFORMATION
  Report Type: 
  Country: None (occurrence: None)
  Receive Date: 20061030
  Receipt Date: 20060621
  Transmission Date: 20070319
  Serious: No
  Sender: FDA-Public Use
  Company Number: S2006US10949

PATIENT
  Sex: Female

DRUGS (3)
  1. ADVAIR HFA [Suspect]
     Indication: ASTHMA
     Route: 055
  2. SEREVENT [Suspect]
     Indication: ASTHMA
     Route: 055
  3. FORADIL [Suspect]
     Indication: DRUG USE FOR UNKNOWN INDICATION
     Route: 065

REACTIONS (2)
  - ABDOMINAL PAIN [None]
  - HEADACHE [None]
